FAERS Safety Report 5558115-0 (Version None)
Quarter: 2007Q4

REPORT INFORMATION
  Report Type: 
  Country: None (occurrence: None)
  Receive Date: 20071211
  Receipt Date: 20071130
  Transmission Date: 20080405
  Serious: No
  Sender: FDA-Public Use
  Company Number: CFNTY-177

PATIENT
  Age: 39 Year
  Sex: Male

DRUGS (3)
  1. MEIACT (CEFDITOREN PIVOXIL) [Suspect]
     Indication: NASOPHARYNGITIS
     Dosage: 300 MG, PO
     Route: 048
     Dates: start: 20071110, end: 20071112
  2. CONFATANIN (LOXOPROFEN SODIUM HYDRATE) [Suspect]
     Indication: NASOPHARYNGITIS
     Dosage: 180 MG/DAY, PO
     Route: 048
     Dates: start: 20071110, end: 20071112
  3. ALUSA (ALDIOXA) [Concomitant]

REACTIONS (7)
  - EOSINOPHIL COUNT DECREASED [None]
  - ERYTHEMA [None]
  - GAIT DISTURBANCE [None]
  - PAIN IN EXTREMITY [None]
  - PURPURA [None]
  - TOXIC SKIN ERUPTION [None]
  - VIRAL INFECTION [None]
